FAERS Safety Report 9759775 (Version 2)
Quarter: 2013Q4

REPORT INFORMATION
  Report Type: Spontaneous
  Country: US (occurrence: US)
  Receive Date: 20131216
  Receipt Date: 20131216
  Transmission Date: 20140711
  Serious: No
  Sender: FDA-Public Use
  Company Number: US-GILEAD-2010-0028643

PATIENT
  Sex: Female

DRUGS (12)
  1. LETAIRIS [Suspect]
     Indication: PULMONARY ARTERIAL HYPERTENSION
     Route: 048
     Dates: start: 20100407, end: 20100415
  2. COUMADIN [Concomitant]
  3. LASIX [Concomitant]
  4. ROBAXIN [Concomitant]
  5. CRESTOR [Concomitant]
  6. SYNTHROID [Concomitant]
  7. KCL [Concomitant]
  8. LEXAPRO [Concomitant]
  9. LORTAB [Concomitant]
  10. LORAZEPAM [Concomitant]
  11. VERAPAMIL [Concomitant]
  12. MIRAPEX [Concomitant]

REACTIONS (3)
  - Blister [Recovering/Resolving]
  - Cellulitis [Unknown]
  - Oedema peripheral [Recovering/Resolving]
